FAERS Safety Report 8375722-0 (Version None)
Quarter: 2012Q2

REPORT INFORMATION
  Report Type: 
  Country: None (occurrence: None)
  Receive Date: 20120522
  Receipt Date: 20120518
  Transmission Date: 20120825
  Serious: No
  Sender: FDA-Public Use
  Company Number: US-PFIZER INC-2012121375

PATIENT
  Sex: Female

DRUGS (1)
  1. SUTENT [Suspect]
     Indication: UTERINE CANCER
     Dosage: 50 MG, DAILY

REACTIONS (2)
  - UTERINE CANCER [None]
  - DISEASE PROGRESSION [None]
